FAERS Safety Report 25422909 (Version 1)
Quarter: 2025Q2

REPORT INFORMATION
  Report Type: Other
  Country: US (occurrence: US)
  Receive Date: 20250611
  Receipt Date: 20250611
  Transmission Date: 20250717
  Serious: Yes (Other)
  Sender: AET PHARMA
  Company Number: US-AET-000025

PATIENT
  Age: 19 Year
  Sex: Female

DRUGS (1)
  1. POSACONAZOLE [Suspect]
     Active Substance: POSACONAZOLE
     Indication: Coccidioidomycosis
     Dosage: 300 MILLI GRAMS

REACTIONS (3)
  - Angioedema [Recovering/Resolving]
  - Cross sensitivity reaction [Unknown]
  - Off label use [Unknown]
